FAERS Safety Report 5509565-X (Version None)
Quarter: 2007Q4

REPORT INFORMATION
  Report Type: 
  Country: None (occurrence: None)
  Receive Date: 20071106
  Receipt Date: 20071016
  Transmission Date: 20080405
  Serious: Yes (Other)
  Sender: FDA-Public Use
  Company Number: STI-2007-01708

PATIENT
  Age: 51 Year
  Sex: Male

DRUGS (3)
  1. CLINDAMYCIN HCL [Suspect]
     Dosage: 900 MG (300 MG,3 IN 1 DAYS)
  2. CEFADROXIL [Suspect]
     Dosage: 1000 MG (500 MG,2 IN 1 DAYS)
  3. METHYLPREDNISOLONE [Suspect]

REACTIONS (6)
  - DERMATITIS EXFOLIATIVE [None]
  - DRUG RASH WITH EOSINOPHILIA AND SYSTEMIC SYMPTOMS [None]
  - PURPURA [None]
  - PYREXIA [None]
  - RASH MACULO-PAPULAR [None]
  - SKIN TEST POSITIVE [None]
